FAERS Safety Report 8599021-7 (Version None)
Quarter: 2012Q3

REPORT INFORMATION
  Report Type: 
  Country: None (occurrence: None)
  Receive Date: 20120816
  Receipt Date: 20120810
  Transmission Date: 20120928
  Serious: Yes (Hospitalization, Other)
  Sender: FDA-Public Use
  Company Number: PHHY2012FR058995

PATIENT
  Sex: Female

DRUGS (10)
  1. ACETAMINOPHEN [Suspect]
     Dosage: 1 G, 3 TO 4 TIMES A DAY
     Dates: start: 20120515
  2. LOVENOX [Suspect]
     Indication: PHLEBITIS
     Dosage: 4000 IU, DAILY
     Dates: start: 20120515
  3. CRESTOR [Concomitant]
     Dosage: 1 DF, QD
     Route: 048
  4. MEGAREAL [Concomitant]
     Indication: NUTRITIONAL CONDITION ABNORMAL
  5. TRAMADOL [Suspect]
     Dosage: 1 DF, BID
     Route: 048
     Dates: start: 20120515
  6. PERINDOPRIL ERBUMINE [Suspect]
     Indication: HYPERTENSION
     Dosage: 1 DF, QD
     Dates: start: 20120601, end: 20120606
  7. NICARDIPINE HCL [Suspect]
     Route: 042
     Dates: start: 20120515
  8. LEVOCARNIL [Concomitant]
     Dosage: 4 G, DAILY
     Dates: start: 20120531
  9. NICARDIPINE HCL [Suspect]
     Dosage: 1 DF, QD
     Route: 048
     Dates: start: 20120601
  10. PROPRANOLOL [Concomitant]
     Dosage: 1 DF, QD

REACTIONS (5)
  - HEMISENSORY NEGLECT [None]
  - LEUKOPENIA [None]
  - AGRANULOCYTOSIS [None]
  - PYREXIA [None]
  - HEMIPARESIS [None]
